FAERS Safety Report 16230335 (Version 1)
Quarter: 2019Q2

REPORT INFORMATION
  Report Type: Spontaneous
  Country: GB (occurrence: GB)
  Receive Date: 20190423
  Receipt Date: 20190423
  Transmission Date: 20190711
  Serious: Yes (Hospitalization)
  Sender: FDA-Public Use
  Company Number: GB-ASTRAZENECA-2019SE57551

PATIENT
  Age: 68 Year
  Sex: Male

DRUGS (13)
  1. METFORMIN HYDROCHLORIDE. [Suspect]
     Active Substance: METFORMIN HYDROCHLORIDE
     Indication: DIABETES MELLITUS
     Route: 048
  2. HUMULIN L [Concomitant]
     Active Substance: INSULIN HUMAN
  3. OMEPRAZOLE SODIUM [Concomitant]
     Active Substance: OMEPRAZOLE SODIUM
  4. CARBOCISTEINE [Concomitant]
     Active Substance: CARBOCYSTEINE
  5. CANDESARTAN CILEXETIL. [Concomitant]
     Active Substance: CANDESARTAN CILEXETIL
  6. FUROSEMIDE. [Concomitant]
     Active Substance: FUROSEMIDE
     Dosage: HELD
  7. FOSTAIR [Concomitant]
     Active Substance: BECLOMETHASONE\FORMOTEROL
  8. SITAGLIPTIN [Concomitant]
     Active Substance: SITAGLIPTIN
  9. TRANSTEC [Concomitant]
     Active Substance: BUPRENORPHINE
  10. DAPAGLIFLOZIN. [Suspect]
     Active Substance: DAPAGLIFLOZIN
     Indication: DIABETES MELLITUS
     Route: 048
     Dates: start: 20190118, end: 20190325
  11. ALLOPURINOL. [Concomitant]
     Active Substance: ALLOPURINOL
  12. GABAPENTIN. [Concomitant]
     Active Substance: GABAPENTIN
  13. COLECALCIFEROL [Concomitant]
     Active Substance: CHOLECALCIFEROL

REACTIONS (4)
  - Dyspnoea [Recovering/Resolving]
  - Metabolic acidosis [Recovering/Resolving]
  - Asthma [Unknown]
  - Wheezing [Unknown]

NARRATIVE: CASE EVENT DATE: 20190324
